FAERS Safety Report 5484017-4 (Version None)
Quarter: 2007Q4

REPORT INFORMATION
  Report Type: 
  Country: None (occurrence: None)
  Receive Date: 20071012
  Receipt Date: 20071002
  Transmission Date: 20080405
  Serious: Yes (Other)
  Sender: FDA-Public Use
  Company Number: BR-ROCHE-483542

PATIENT
  Age: 17 Year
  Sex: Female
  Weight: 60 kg

DRUGS (4)
  1. ISOTRETINOIN [Suspect]
     Indication: ACNE
     Route: 048
     Dates: start: 20060701, end: 20070101
  2. ISOTRETINOIN [Suspect]
     Route: 048
     Dates: start: 20030501, end: 20031201
  3. NISULID [Concomitant]
     Route: 048
  4. METFORMIN HCL [Concomitant]
     Dates: start: 20050101

REACTIONS (1)
  - ABORTION SPONTANEOUS [None]
